FAERS Safety Report 5590564-7 (Version None)
Quarter: 2008Q1

REPORT INFORMATION
  Report Type: 
  Country: None (occurrence: None)
  Receive Date: 20080110
  Receipt Date: 20071207
  Transmission Date: 20080703
  Serious: Yes (Hospitalization)
  Sender: FDA-Public Use
  Company Number: 163-21880-07120449

PATIENT
  Age: 44 Year
  Sex: Male

DRUGS (4)
  1. REVLIMID [Suspect]
     Indication: SYSTEMIC LUPUS ERYTHEMATOSUS
     Dosage: 5 MG, 1 IN 1 D, ORAL
     Route: 048
     Dates: start: 20070418, end: 20071001
  2. QUINACRINE (MEPACRINE HYDROCHLORIDE) [Suspect]
     Indication: DRUG USE FOR UNKNOWN INDICATION
  3. HYOSCYAMINE (HYOSCYAMINE) [Concomitant]
  4. PREDNISONE [Concomitant]

REACTIONS (7)
  - ABDOMINAL PAIN UPPER [None]
  - ALOPECIA [None]
  - ANOREXIA [None]
  - OFF LABEL USE [None]
  - RASH [None]
  - SKIN ULCER [None]
  - WEIGHT DECREASED [None]
